FAERS Safety Report 24940768 (Version 2)
Quarter: 2025Q1

REPORT INFORMATION
  Report Type: Spontaneous
  Country: IL (occurrence: IL)
  Receive Date: 20250207
  Receipt Date: 20250212
  Transmission Date: 20250408
  Serious: Yes (Other)
  Sender: JOHNSON AND JOHNSON
  Company Number: IL-JNJFOC-20250195872

PATIENT
  Age: 66 Year
  Sex: Female

DRUGS (4)
  1. IMBRUVICA [Suspect]
     Active Substance: IBRUTINIB
     Indication: Mantle cell lymphoma
     Route: 048
  2. IMBRUVICA [Suspect]
     Active Substance: IBRUTINIB
     Indication: Chronic lymphocytic leukaemia
  3. NILOTINIB HYDROCHLORIDE MONOHYDRATE [Concomitant]
     Active Substance: NILOTINIB HYDROCHLORIDE MONOHYDRATE
     Indication: Chronic lymphocytic leukaemia
  4. NILOTINIB HYDROCHLORIDE MONOHYDRATE [Concomitant]
     Active Substance: NILOTINIB HYDROCHLORIDE MONOHYDRATE
     Indication: Mantle cell lymphoma

REACTIONS (1)
  - Deep vein thrombosis [Unknown]
